FAERS Safety Report 8298501-1 (Version None)
Quarter: 2012Q2

REPORT INFORMATION
  Report Type: 
  Country: None (occurrence: None)
  Receive Date: 20120419
  Receipt Date: 20120411
  Transmission Date: 20120825
  Serious: Yes (Hospitalization)
  Sender: FDA-Public Use
  Company Number: IT-ROCHE-1058941

PATIENT
  Sex: Female

DRUGS (2)
  1. ROCEPHIN [Suspect]
     Indication: BRONCHITIS
     Route: 030
     Dates: start: 20120321, end: 20120321
  2. BETAMETHASONE SODIUM PHOSPHATE [Concomitant]
     Dosage: RECEIVED 2 VIALS
     Route: 065

REACTIONS (3)
  - SALIVARY HYPERSECRETION [None]
  - SYNCOPE [None]
  - CONFUSIONAL STATE [None]
